FAERS Safety Report 10474127 (Version 1)
Quarter: 2014Q3

REPORT INFORMATION
  Report Type: Spontaneous
  Country: US (occurrence: US)
  Receive Date: 20140924
  Receipt Date: 20140924
  Transmission Date: 20150326
  Serious: No
  Sender: FDA-Public Use
  Company Number: US-ASTRAZENECA-2013SE72422

PATIENT
  Age: 76 Year
  Sex: Male
  Weight: 90.7 kg

DRUGS (6)
  1. ZESTORETIC [Suspect]
     Active Substance: HYDROCHLOROTHIAZIDE\LISINOPRIL
     Dosage: GENERIC SANDOZ
     Route: 048
  2. ZESTRIL [Suspect]
     Active Substance: LISINOPRIL
     Route: 048
     Dates: start: 1990
  3. ZESTORETIC [Suspect]
     Active Substance: HYDROCHLOROTHIAZIDE\LISINOPRIL
     Dosage: GENERIC LUPIN
     Route: 048
  4. ZESTORETIC [Suspect]
     Active Substance: HYDROCHLOROTHIAZIDE\LISINOPRIL
     Route: 048
     Dates: start: 20130922
  5. ZESTORETIC [Suspect]
     Active Substance: HYDROCHLOROTHIAZIDE\LISINOPRIL
     Dosage: 20 MG. 12.5MG DAILY
     Route: 048
  6. ZESTORETIC [Suspect]
     Active Substance: HYDROCHLOROTHIAZIDE\LISINOPRIL
     Dosage: GENERIC MERCK
     Route: 048

REACTIONS (9)
  - Visual field defect [Unknown]
  - Diarrhoea [Recovered/Resolved]
  - Nocturia [Recovered/Resolved]
  - Sleep disorder due to a general medical condition [Recovered/Resolved]
  - Body height decreased [Unknown]
  - Malaise [Recovered/Resolved]
  - Intentional product misuse [Unknown]
  - Thrombosis [Unknown]
  - Photosensitivity reaction [Not Recovered/Not Resolved]

NARRATIVE: CASE EVENT DATE: 201210
